FAERS Safety Report 9848453 (Version 1)
Quarter: 2013Q4

REPORT INFORMATION
  Report Type: Spontaneous
  Country: US (occurrence: None)
  Receive Date: 20131224
  Receipt Date: 20131224
  Transmission Date: 20140711
  Serious: Yes (Life-Threatening, Other)
  Sender: FDA-Public Use
  Company Number: PHEH2013US002043

PATIENT
  Age: 73 Year
  Sex: Male
  Weight: 135 kg

DRUGS (2)
  1. EXJADE (*CGP 72670*) DISPERSIBLE TABLET, 500MG [Suspect]
     Indication: MYELODYSPLASTIC SYNDROME
     Route: 048
     Dates: start: 20120622
  2. VIDAZA (AZACITIDINE) (UNKNOWN) [Suspect]

REACTIONS (5)
  - Myelodysplastic syndrome [None]
  - Condition aggravated [None]
  - Haemoglobin decreased [None]
  - Pancytopenia [None]
  - Haemolysis [None]
